FAERS Safety Report 18358999 (Version 4)
Quarter: 2020Q4

REPORT INFORMATION
  Report Type: Spontaneous
  Country: JP (occurrence: JP)
  Receive Date: 20201008
  Receipt Date: 20201215
  Transmission Date: 20210114
  Serious: Yes (Other)
  Sender: FDA-Public Use
  Company Number: JP-REGENERON PHARMACEUTICALS, INC.-2020-80521

PATIENT

DRUGS (3)
  1. EYLEA [Suspect]
     Active Substance: AFLIBERCEPT
     Indication: CHOROIDAL NEOVASCULARISATION
     Dosage: RIGHT EYE, 0.05ML, ONCE
     Route: 031
     Dates: start: 20200813, end: 20200813
  2. LEVOFLOXACIN HEMIHYDRATE [Concomitant]
     Active Substance: LEVOFLOXACIN
     Indication: INFECTION PROPHYLAXIS
     Dosage: RIGHT EYE, QID
     Route: 047
     Dates: start: 20200810, end: 20200816
  3. XYLOCAINE [Concomitant]
     Active Substance: LIDOCAINE HYDROCHLORIDE
     Indication: ANAESTHESIA PROCEDURE
     Route: 047

REACTIONS (6)
  - Vitreoretinal traction syndrome [Unknown]
  - Retinal tear [Recovered/Resolved with Sequelae]
  - Product contamination physical [Unknown]
  - Eye laser scar [Unknown]
  - Foreign body in eye [Recovered/Resolved with Sequelae]
  - Vitreous floaters [Not Recovered/Not Resolved]

NARRATIVE: CASE EVENT DATE: 20200820
